FAERS Safety Report 8062460-7 (Version None)
Quarter: 2012Q1

REPORT INFORMATION
  Report Type: 
  Country: None (occurrence: None)
  Receive Date: 20120123
  Receipt Date: 20120111
  Transmission Date: 20120608
  Serious: Yes (Life-Threatening, Hospitalization, Other)
  Sender: FDA-Public Use
  Company Number: US-BAYER-2011-081855

PATIENT
  Age: 15 Year
  Sex: Female
  Weight: 48.526 kg

DRUGS (3)
  1. BENTYL [Concomitant]
     Route: 048
  2. PEPCID [Concomitant]
     Route: 048
  3. YASMIN [Suspect]
     Indication: CONTRACEPTION
     Dosage: UNK
     Dates: start: 20060510, end: 20070225

REACTIONS (11)
  - CHOLELITHIASIS [None]
  - GALLBLADDER DISORDER [None]
  - HYDRONEPHROSIS [None]
  - ANXIETY [None]
  - ANHEDONIA [None]
  - ABDOMINAL PAIN [None]
  - CHOLECYSTITIS CHRONIC [None]
  - INJURY [None]
  - BACK PAIN [None]
  - RENAL INJURY [None]
  - PAIN [None]
